FAERS Safety Report 8885282 (Version 1)
Quarter: 2012Q4

REPORT INFORMATION
  Report Type: 
  Country: US (occurrence: US)
  Receive Date: 20121102
  Receipt Date: 20121102
  Transmission Date: 20130627
  Serious: No
  Sender: FDA-Public Use
  Company Number: US-PFIZER INC-2012267233

PATIENT

DRUGS (1)
  1. NORVASC [Suspect]
     Indication: BLOOD PRESSURE
     Dosage: UNK

REACTIONS (2)
  - Rash [Unknown]
  - Flushing [Unknown]
